FAERS Safety Report 10601165 (Version 2)
Quarter: 2014Q4

REPORT INFORMATION
  Report Type: Spontaneous
  Country: US (occurrence: US)
  Receive Date: 20141124
  Receipt Date: 20141126
  Transmission Date: 20150529
  Serious: Yes (Death)
  Sender: FDA-Public Use
  Company Number: US-009507513-1411USA009252

PATIENT
  Sex: Male

DRUGS (3)
  1. EMEND [Suspect]
     Active Substance: APREPITANT
     Dosage: 80 MG ON DAY 2
     Route: 048
  2. EMEND [Suspect]
     Active Substance: APREPITANT
     Dosage: 80 MG ON DAY 3
     Route: 048
  3. EMEND [Suspect]
     Active Substance: APREPITANT
     Dosage: 125 MG ON DAY 1
     Route: 048

REACTIONS (1)
  - Death [Fatal]

NARRATIVE: CASE EVENT DATE: 2014
